FAERS Safety Report 4483862-1 (Version None)
Quarter: 2004Q4

REPORT INFORMATION
  Report Type: 
  Country: None (occurrence: None)
  Receive Date: 20041022
  Receipt Date: 20041022
  Transmission Date: 20050328
  Serious: Yes (Hospitalization)
  Sender: FDA-Public Use
  Company Number: None

PATIENT
  Age: 66 Year
  Sex: Male
  Weight: 73.0291 kg

DRUGS (19)
  1. OXALIPLATIN [Suspect]
     Indication: RECTAL CANCER
     Dosage: 110MG IV
     Route: 042
     Dates: start: 20040916
  2. OXALIPLATIN [Suspect]
     Indication: RECTAL CANCER
     Dosage: 110MG IV
     Route: 042
     Dates: start: 20040923
  3. OXALIPLATIN [Suspect]
     Indication: RECTAL CANCER
     Dosage: 110MG IV
     Route: 042
     Dates: start: 20040930
  4. OXALIPLATIN [Suspect]
     Indication: RECTAL CANCER
     Dosage: 110MG IV
     Route: 042
     Dates: start: 20041007
  5. OXALIPLATIN [Suspect]
     Indication: RECTAL CANCER
     Dosage: 110MG IV
     Route: 042
     Dates: start: 20041021
  6. CAPECITABINE [Suspect]
     Dosage: 1500MG PO DAILY
     Route: 048
     Dates: start: 20040916, end: 20041020
  7. XRT [Suspect]
     Indication: RECTAL CANCER
     Dosage: 180 CGY 1DAILY
     Dates: start: 20040916
  8. PLAVIX [Concomitant]
  9. NIACIN [Concomitant]
  10. ALTACE [Concomitant]
  11. NITROGLYCERIN [Concomitant]
  12. LASIX [Concomitant]
  13. PROTONIX [Concomitant]
  14. ZETIA [Concomitant]
  15. COREG [Concomitant]
  16. LOMOTIL [Concomitant]
  17. LORAZEPAM [Concomitant]
  18. LORTAB [Concomitant]
  19. COMPAZINE [Concomitant]

REACTIONS (6)
  - ASTHENIA [None]
  - DIARRHOEA [None]
  - DIZZINESS POSTURAL [None]
  - DYSARTHRIA [None]
  - FALL [None]
  - TRANSIENT ISCHAEMIC ATTACK [None]
